FAERS Safety Report 17476927 (Version 1)
Quarter: 2020Q1

REPORT INFORMATION
  Report Type: Report from Study
  Country: CL (occurrence: CL)
  Receive Date: 20200228
  Receipt Date: 20200228
  Transmission Date: 20200409
  Serious: Yes (Other)
  Sender: FDA-Public Use
  Company Number: CL-JNJFOC-20190831902

PATIENT
  Age: 40 Year
  Sex: Female

DRUGS (1)
  1. SIMPONI [Suspect]
     Active Substance: GOLIMUMAB
     Indication: PSORIATIC ARTHROPATHY
     Dosage: INTERVAL: INITIAL
     Route: 058
     Dates: start: 2017

REACTIONS (5)
  - Product dose omission [Unknown]
  - Psoriatic arthropathy [Unknown]
  - Nasopharyngitis [Recovering/Resolving]
  - Bone pain [Recovering/Resolving]
  - Joint injection [Recovering/Resolving]

NARRATIVE: CASE EVENT DATE: 20190705
